FAERS Safety Report 18040882 (Version 2)
Quarter: 2020Q3

REPORT INFORMATION
  Report Type: Spontaneous
  Country: IL (occurrence: IL)
  Receive Date: 20200717
  Receipt Date: 20200726
  Transmission Date: 20201103
  Serious: Yes (Congenital Anomaly, Other)
  Sender: FDA-Public Use
  Company Number: NVSC2020IL200241

PATIENT

DRUGS (8)
  1. ETANERCEPT [Suspect]
     Active Substance: ETANERCEPT
     Indication: FOETAL EXPOSURE DURING PREGNANCY
     Dosage: UNK (MATERNAL DOSE 25 MG)
     Route: 064
  2. ENOXAPARIN [Suspect]
     Active Substance: ENOXAPARIN
     Indication: FOETAL EXPOSURE DURING PREGNANCY
     Dosage: UNK (MATERNAL DOSE: UNKNOWN)
     Route: 064
  3. HYDROXYCHLOROQUINE [Suspect]
     Active Substance: HYDROXYCHLOROQUINE
     Indication: FOETAL EXPOSURE DURING PREGNANCY
     Dosage: UNK (MATERNAL DOSE 200 MG QD)
     Route: 064
  4. VANCOMYCIN [Suspect]
     Active Substance: VANCOMYCIN
     Indication: FOETAL EXPOSURE DURING PREGNANCY
     Dosage: UNK (MATERNAL DOSE: UNKNOWN)
     Route: 064
  5. PREDNISONE. [Suspect]
     Active Substance: PREDNISONE
     Indication: FOETAL EXPOSURE DURING PREGNANCY
     Dosage: UNK (MATERNAL DOSE 10 MG QD)
     Route: 064
  6. AMPICILLINE (AMPICILLIN SODIUM) [Suspect]
     Active Substance: AMPICILLIN SODIUM
     Indication: FOETAL EXPOSURE DURING PREGNANCY
     Dosage: UNK (MATERNAL DOSE: UNKNOWN)
     Route: 064
  7. GENTAMICIN. [Suspect]
     Active Substance: GENTAMICIN
     Indication: FOETAL EXPOSURE DURING PREGNANCY
     Dosage: UNK (MATERNAL DOSE: UNKNOWN)
     Route: 064
  8. METOTREXAT [Concomitant]
     Active Substance: METHOTREXATE SODIUM
     Indication: FOETAL EXPOSURE DURING PREGNANCY
     Dosage: UNK (MATERNAL DOSE:5,UNK Q3W)
     Route: 064

REACTIONS (9)
  - Anaemia [Unknown]
  - Jaundice [Unknown]
  - Neonatal respiratory distress syndrome [Unknown]
  - Patent ductus arteriosus [Unknown]
  - Premature baby [Unknown]
  - Oedema [Unknown]
  - Foetal exposure during pregnancy [Unknown]
  - Thrombocytopenia [Unknown]
  - Ecchymosis [Unknown]
